FAERS Safety Report 4421596-X (Version None)
Quarter: 2004Q3

REPORT INFORMATION
  Report Type: 
  Country: None (occurrence: None)
  Receive Date: 20040804
  Receipt Date: 20040713
  Transmission Date: 20050211
  Serious: Yes (Other)
  Sender: FDA-Public Use
  Company Number: US_011279404

PATIENT
  Sex: Male
  Weight: 91 kg

DRUGS (2)
  1. HUMULIN N [Suspect]
     Indication: DIABETES MELLITUS
     Dosage: 15 U/2 DAY
     Dates: end: 20040401
  2. HUMULIN R [Suspect]
     Indication: DIABETES MELLITUS
     Dosage: 40 U DAY
     Dates: end: 20040401

REACTIONS (6)
  - BLINDNESS UNILATERAL [None]
  - BLOOD GLUCOSE INCREASED [None]
  - CATARACT [None]
  - COUGH [None]
  - EYE HAEMORRHAGE [None]
  - GLAUCOMA [None]
